FAERS Safety Report 4289880-0 (Version None)
Quarter: 2004Q1

REPORT INFORMATION
  Report Type: 
  Country: None (occurrence: None)
  Receive Date: 20040206
  Receipt Date: 20040123
  Transmission Date: 20041129
  Serious: Yes (Hospitalization)
  Sender: FDA-Public Use
  Company Number: 2004-00060FE

PATIENT
  Age: 25 Year
  Sex: Female

DRUGS (4)
  1. PENTASA [Suspect]
     Indication: COLITIS ULCERATIVE
     Dosage: 2250 MG, ORALLY
     Route: 048
     Dates: start: 20031215, end: 20040108
  2. PENTASA [Suspect]
     Indication: ENTEROCOLITIS HAEMORRHAGIC
     Dosage: 2250 MG, ORALLY
     Route: 048
     Dates: start: 20031215, end: 20040108
  3. TIQUIZIUM BROMIDE [Concomitant]
  4. LOXOPROFEN SODIUM [Concomitant]

REACTIONS (6)
  - COUGH [None]
  - MELAENA [None]
  - PLEURAL EFFUSION [None]
  - PLEURISY [None]
  - PYREXIA [None]
  - RESPIRATORY DISTRESS [None]
